FAERS Safety Report 19861094 (Version 5)
Quarter: 2022Q3

REPORT INFORMATION
  Report Type: Spontaneous
  Country: CA (occurrence: CA)
  Receive Date: 20210920
  Receipt Date: 20220811
  Transmission Date: 20221027
  Serious: Yes (Other)
  Sender: FDA-Public Use
  Company Number: CA-PFIZER INC-202101162095

PATIENT
  Age: 46 Year
  Sex: Female
  Weight: 69 kg

DRUGS (22)
  1. SOLU-CORTEF [Suspect]
     Active Substance: HYDROCORTISONE SODIUM SUCCINATE
     Indication: Premedication
     Dosage: 100 MG
     Route: 042
  2. CIMETIDINE [Suspect]
     Active Substance: CIMETIDINE
     Indication: Premedication
     Dosage: 300 MG
     Route: 048
  3. DIPHENHYDRAMINE HYDROCHLORIDE [Suspect]
     Active Substance: DIPHENHYDRAMINE HYDROCHLORIDE
     Dosage: 50 MG
     Route: 042
  4. OGIVRI [Suspect]
     Active Substance: TRASTUZUMAB-DKST
     Indication: Breast cancer metastatic
     Dosage: 414 MG 1 EVERY 2 WEEKS
     Route: 042
  5. OGIVRI [Suspect]
     Active Substance: TRASTUZUMAB-DKST
     Dosage: 414 MG 1 EVERY 2 WEEKS
     Route: 042
  6. OGIVRI [Suspect]
     Active Substance: TRASTUZUMAB-DKST
     Dosage: 414 MG 1 EVERY 2 WEEKS
     Route: 042
  7. OGIVRI [Suspect]
     Active Substance: TRASTUZUMAB-DKST
     Dosage: 414 MG, 1 EVERY 2 WEEKS
     Route: 065
  8. OGIVRI [Suspect]
     Active Substance: TRASTUZUMAB-DKST
     Dosage: 414 MG, 1 EVERY 2 WEEKS
     Route: 065
  9. OGIVRI [Suspect]
     Active Substance: TRASTUZUMAB-DKST
     Dosage: UNK, 1 EVERY 2 WEEKS
     Route: 042
  10. OGIVRI [Suspect]
     Active Substance: TRASTUZUMAB-DKST
     Dosage: 414 MG, 1 EVERY 2 WEEKS
     Route: 065
  11. OGIVRI [Suspect]
     Active Substance: TRASTUZUMAB-DKST
     Indication: Breast cancer metastatic
     Dosage: 414 MG 1 EVERY 2 WEEKS
     Route: 065
  12. OGIVRI [Suspect]
     Active Substance: TRASTUZUMAB-DKST
     Dosage: 414 MG 1 EVERY 2 WEEKS
     Route: 065
  13. OGIVRI [Suspect]
     Active Substance: TRASTUZUMAB-DKST
     Dosage: 378 MG 1 EVERY 2 WEEKS
     Route: 065
  14. OGIVRI [Suspect]
     Active Substance: TRASTUZUMAB-DKST
     Dosage: UNK, 1 EVERY 2 WEEKS
     Route: 042
  15. OGIVRI [Suspect]
     Active Substance: TRASTUZUMAB-DKST
     Dosage: 414 MG 1 EVERY 2 WEEKS
     Route: 065
  16. OGIVRI [Suspect]
     Active Substance: TRASTUZUMAB-DKST
     Indication: Breast cancer metastatic
     Dosage: 378 MG
     Route: 065
  17. OGIVRI [Suspect]
     Active Substance: TRASTUZUMAB-DKST
     Dosage: 1 EVERY 2 WEEKS
     Route: 042
  18. OGIVRI [Suspect]
     Active Substance: TRASTUZUMAB-DKST
     Dosage: 414 MG 1 EVERY 2 WEEKS
     Route: 065
  19. OGIVRI [Suspect]
     Active Substance: TRASTUZUMAB-DKST
     Dosage: 414 MG 1 EVERY 2 WEEKS
     Route: 065
  20. OGIVRI [Suspect]
     Active Substance: TRASTUZUMAB-DKST
     Dosage: 360 MG 1 EVERY 2 WEEKS
     Route: 042
  21. OGIVRI [Suspect]
     Active Substance: TRASTUZUMAB-DKST
     Dosage: 318 MG 1 EVERY 2 WEEKS
     Route: 065
  22. BENADRYL [Suspect]
     Active Substance: DIPHENHYDRAMINE HYDROCHLORIDE
     Indication: Premedication
     Dosage: 50 MG
     Route: 065

REACTIONS (4)
  - Weight decreased [Not Recovered/Not Resolved]
  - Hypotension [Not Recovered/Not Resolved]
  - Heart rate decreased [Not Recovered/Not Resolved]
  - Weight increased [Not Recovered/Not Resolved]

NARRATIVE: CASE EVENT DATE: 20211201
